FAERS Safety Report 6085312-0 (Version None)
Quarter: 2009Q1

REPORT INFORMATION
  Report Type: 
  Country: None (occurrence: None)
  Receive Date: 20090220
  Receipt Date: 20090130
  Transmission Date: 20090719
  Serious: Yes (Death)
  Sender: FDA-Public Use
  Company Number: US-TYCO HEALTHCARE/MALLINCKRODT-T200900247

PATIENT
  Age: 20 Year
  Sex: Female

DRUGS (6)
  1. OXYCODONE [Suspect]
     Route: 065
  2. TRAMADOL HCL [Suspect]
     Route: 065
  3. ZOLPIDEM [Suspect]
     Route: 065
  4. IBUPROFEN [Suspect]
     Route: 065
  5. ETODOLAC [Suspect]
     Route: 065
  6. PHENTERMINE [Suspect]
     Route: 065

REACTIONS (1)
  - CARDIO-RESPIRATORY ARREST [None]
